FAERS Safety Report 17407165 (Version 1)
Quarter: 2020Q1

REPORT INFORMATION
  Report Type: Spontaneous
  Country: US (occurrence: US)
  Receive Date: 20200212
  Receipt Date: 20200212
  Transmission Date: 20200409
  Serious: No
  Sender: FDA-Public Use
  Company Number: US-GLAXOSMITHKLINE-US2020AMR022243

PATIENT
  Sex: Male

DRUGS (7)
  1. SHINGRIX [Suspect]
     Active Substance: RECOMBINANT VARICELLA ZOSTER VIRUS (VZV) GLYCOPROTEIN E
     Indication: PROPHYLAXIS
     Route: 030
     Dates: start: 201909
  2. FLUTICASONE DISKUS INHALATION POWDER [Suspect]
     Active Substance: FLUTICASONE PROPIONATE
     Indication: BRONCHIAL HYPERREACTIVITY
  3. FLUTICASONE DISKUS INHALATION POWDER [Suspect]
     Active Substance: FLUTICASONE PROPIONATE
     Indication: ASTHMA
  4. SALMETEROL DISKUS (SALMETEROL XINAFOATE) [Suspect]
     Active Substance: SALMETEROL XINAFOATE
     Indication: ASTHMA
  5. SALMETEROL DISKUS (SALMETEROL XINAFOATE) [Suspect]
     Active Substance: SALMETEROL XINAFOATE
     Indication: BRONCHIAL HYPERREACTIVITY
  6. GLUCOSAMINE [Concomitant]
     Active Substance: GLUCOSAMINE
  7. COMBIVENT [Concomitant]
     Active Substance: ALBUTEROL SULFATE\IPRATROPIUM BROMIDE

REACTIONS (1)
  - Influenza like illness [Recovered/Resolved]
